FAERS Safety Report 15215188 (Version 1)
Quarter: 2018Q3

REPORT INFORMATION
  Report Type: Report from Study
  Country: IN (occurrence: IN)
  Receive Date: 20180730
  Receipt Date: 20180730
  Transmission Date: 20181010
  Serious: Yes (Death)
  Sender: FDA-Public Use
  Company Number: IN-PFIZER INC-2018303675

PATIENT

DRUGS (4)
  1. FLUCONAZOLE. [Suspect]
     Active Substance: FLUCONAZOLE
     Indication: MENINGITIS CRYPTOCOCCAL
     Dosage: 400 MG, UNK (FOR 8 WEEKS)
  2. FLUCONAZOLE. [Suspect]
     Active Substance: FLUCONAZOLE
     Dosage: 200 MG, DAILY (MAINTENANCE THERAPY)
  3. AMPHOTERICIN B DEOXYCHOLATE [Suspect]
     Active Substance: AMPHOTERICIN B
     Indication: MENINGITIS CRYPTOCOCCAL
     Dosage: 0.7 MG/KG, DAILY (5% DEXTROSE OVER 8 H)
  4. NORMAL SALINE [Concomitant]
     Active Substance: SODIUM CHLORIDE
     Indication: TOXICITY TO VARIOUS AGENTS
     Dosage: 500 ML, UNK

REACTIONS (1)
  - Drug ineffective [Fatal]
